FAERS Safety Report 10085165 (Version 1)
Quarter: 2014Q2

REPORT INFORMATION
  Report Type: Spontaneous
  Country: US (occurrence: US)
  Receive Date: 20140417
  Receipt Date: 20140417
  Transmission Date: 20141212
  Serious: Yes (Hospitalization)
  Sender: FDA-Public Use
  Company Number: US-MALLINCKRODT-T201401789

PATIENT
  Age: 79 Year
  Sex: Female
  Weight: 76.19 kg

DRUGS (2)
  1. FENTANYL TRANSDERMAL SYSTEM [Suspect]
     Indication: BACK PAIN
     Dosage: 50 MCG/HR, ONE Q72H
     Route: 062
  2. FENTANYL TRANSDERMAL SYSTEM [Suspect]
     Dosage: 25 MCG/HR, Q72H
     Route: 062

REACTIONS (4)
  - Kidney infection [Recovering/Resolving]
  - Hypertension [Recovered/Resolved]
  - Drug effect decreased [Recovering/Resolving]
  - Application site irritation [Recovered/Resolved]
